FAERS Safety Report 7312691-6 (Version None)
Quarter: 2011Q1

REPORT INFORMATION
  Report Type: 
  Country: None (occurrence: None)
  Receive Date: 20110224
  Receipt Date: 20101103
  Transmission Date: 20110831
  Serious: No
  Sender: FDA-Public Use
  Company Number: US-ASTRAZENECA-2010SE52112

PATIENT
  Age: 26 Year
  Sex: Female

DRUGS (1)
  1. VIMOVO [Suspect]
     Indication: MIGRAINE
     Route: 048

REACTIONS (2)
  - PRURITUS [None]
  - THERAPEUTIC RESPONSE UNEXPECTED [None]
